FAERS Safety Report 15464406 (Version 2)
Quarter: 2020Q2

REPORT INFORMATION
  Report Type: Report from Study
  Country: US (occurrence: US)
  Receive Date: 20181004
  Receipt Date: 20200523
  Transmission Date: 20200713
  Serious: Yes (Other)
  Sender: FDA-Public Use
  Company Number: US-AMGEN-USASP2018136699

PATIENT
  Age: 64 Year
  Sex: Female

DRUGS (1)
  1. ENBREL [Suspect]
     Active Substance: ETANERCEPT
     Indication: RHEUMATOID ARTHRITIS
     Dosage: 50 MILLIGRAM, QWK
     Route: 065
     Dates: start: 2012

REACTIONS (11)
  - Joint dislocation [Unknown]
  - Hernia repair [Unknown]
  - Joint effusion [Unknown]
  - Arthritis infective [Unknown]
  - Tendon rupture [Unknown]
  - Joint arthroplasty [Unknown]
  - Arthropathy [Unknown]
  - Injection site pain [Unknown]
  - Rheumatoid arthritis [Unknown]
  - Incorrect dose administered by device [Unknown]
  - Stress [Unknown]

NARRATIVE: CASE EVENT DATE: 2017
